FAERS Safety Report 10241435 (Version 2)
Quarter: 2014Q2

REPORT INFORMATION
  Report Type: Spontaneous
  Country: JP (occurrence: JP)
  Receive Date: 20140617
  Receipt Date: 20140617
  Transmission Date: 20141212
  Serious: Yes (Other)
  Sender: FDA-Public Use
  Company Number: PHHY2014JP069444

PATIENT
  Age: 37 Year
  Sex: Male

DRUGS (4)
  1. SENNARIDE [Suspect]
     Dosage: 24 MG, UNK
     Route: 048
     Dates: start: 20131226, end: 20140602
  2. DEPAKENE [Concomitant]
     Dosage: 300 MG, UNK
     Route: 048
  3. MAGNESIUM OXIDE [Concomitant]
     Dosage: 2.4 G, UNK
     Route: 048
  4. ATORVASTATIN CALCIUM [Concomitant]
     Dosage: 10 MG, UNK
     Route: 048

REACTIONS (2)
  - Blood urine [Recovered/Resolved]
  - Chromaturia [Recovered/Resolved]
